FAERS Safety Report 24540623 (Version 1)
Quarter: 2024Q4

REPORT INFORMATION
  Report Type: Spontaneous
  Country: FR (occurrence: FR)
  Receive Date: 20241023
  Receipt Date: 20241023
  Transmission Date: 20250115
  Serious: Yes (Hospitalization, Other)
  Sender: SANDOZ
  Company Number: FR-NOVPHSZ-PHHY2019FR028230

PATIENT
  Age: 17 Year
  Sex: Male
  Weight: 57 kg

DRUGS (1)
  1. ACETAMINOPHEN [Suspect]
     Active Substance: ACETAMINOPHEN
     Indication: Headache
     Dosage: 2 G, Q2H
     Route: 048

REACTIONS (5)
  - Renal failure [Recovering/Resolving]
  - Hepatic failure [Recovered/Resolved]
  - Drug level increased [Recovered/Resolved]
  - Medication error [Recovered/Resolved]
  - Inappropriate schedule of product administration [Recovered/Resolved]

NARRATIVE: CASE EVENT DATE: 20190102
